FAERS Safety Report 24174553 (Version 1)
Quarter: 2024Q3

REPORT INFORMATION
  Report Type: Spontaneous
  Country: US (occurrence: US)
  Receive Date: 20240805
  Receipt Date: 20240805
  Transmission Date: 20241017
  Serious: No
  Sender: ABBVIE
  Company Number: US-ABBVIE-5862530

PATIENT
  Age: 22 Year
  Sex: Female

DRUGS (1)
  1. VIBERZI [Suspect]
     Active Substance: ELUXADOLINE
     Indication: Product used for unknown indication
     Dosage: FORM STRENGTH: 75 MILLIGRAM
     Route: 048
     Dates: start: 202407, end: 202407

REACTIONS (2)
  - Rectal haemorrhage [Unknown]
  - Abdominal pain lower [Unknown]
